FAERS Safety Report 18754648 (Version 1)
Quarter: 2021Q1

REPORT INFORMATION
  Report Type: Spontaneous
  Country: US (occurrence: US)
  Receive Date: 20210119
  Receipt Date: 20210119
  Transmission Date: 20210419
  Serious: Yes (Hospitalization)
  Sender: FDA-Public Use
  Company Number: US-LUPIN PHARMACEUTICALS INC.-2021-00258

PATIENT
  Age: 69 Year
  Sex: Female

DRUGS (1)
  1. PHENYTOIN SODIUM. [Suspect]
     Active Substance: PHENYTOIN SODIUM
     Indication: PRODUCT USED FOR UNKNOWN INDICATION
     Dosage: UNK
     Route: 065

REACTIONS (10)
  - Nystagmus [Unknown]
  - Ataxia [Unknown]
  - Eye injury [Unknown]
  - Vomiting [Unknown]
  - Gait disturbance [Unknown]
  - Nausea [Recovered/Resolved]
  - Toxicity to various agents [Unknown]
  - Dysarthria [Unknown]
  - Fall [Unknown]
  - Hand fracture [Unknown]
